FAERS Safety Report 4936041-5 (Version None)
Quarter: 2006Q1

REPORT INFORMATION
  Report Type: 
  Country: None (occurrence: None)
  Receive Date: 20060307
  Receipt Date: 20050914
  Transmission Date: 20060701
  Serious: Yes (Hospitalization)
  Sender: FDA-Public Use
  Company Number: US-GLAXOSMITHKLINE-A0574233A

PATIENT
  Sex: Male

DRUGS (8)
  1. REQUIP [Suspect]
     Indication: PARKINSON'S DISEASE
     Dosage: 2MG TWICE PER DAY
     Route: 048
  2. LASIX [Concomitant]
  3. LIPITOR [Concomitant]
  4. BUSPAR [Concomitant]
  5. COLCHICINE [Concomitant]
  6. POTASSIUM [Concomitant]
  7. DITROPAN [Concomitant]
  8. MIRAPEX [Concomitant]

REACTIONS (1)
  - OEDEMA PERIPHERAL [None]
